FAERS Safety Report 24597506 (Version 1)
Quarter: 2024Q4

REPORT INFORMATION
  Report Type: Spontaneous
  Country: US (occurrence: US)
  Receive Date: 20241110
  Receipt Date: 20241110
  Transmission Date: 20250114
  Serious: No
  Sender: SANOFI AVENTIS
  Company Number: US-SA-2024SA311217

PATIENT
  Age: 76 Year
  Sex: Male

DRUGS (7)
  1. DUPIXENT [Suspect]
     Active Substance: DUPILUMAB
     Indication: Dermatitis atopic
     Dosage: 300 MG, OTHER
     Route: 058
     Dates: start: 20230117
  2. CARVEDILOL [Concomitant]
     Active Substance: CARVEDILOL
     Route: 048
  3. CLOBETASOL PROPIONATE [Concomitant]
     Active Substance: CLOBETASOL PROPIONATE
  4. PREGABALIN [Concomitant]
     Active Substance: PREGABALIN
     Route: 048
  5. SEVELAMER CARBONATE [Concomitant]
     Active Substance: SEVELAMER CARBONATE
  6. TAMSULOSIN HYDROCHLORIDE [Concomitant]
     Active Substance: TAMSULOSIN HYDROCHLORIDE
     Route: 048
  7. XDEMVY [Concomitant]
     Active Substance: LOTILANER

REACTIONS (1)
  - Blepharitis [Unknown]

NARRATIVE: CASE EVENT DATE: 20241017
